FAERS Safety Report 10152231 (Version 5)
Quarter: 2016Q3

REPORT INFORMATION
  Report Type: Report from Study
  Country: US (occurrence: US)
  Receive Date: 20140505
  Receipt Date: 20160915
  Transmission Date: 20161108
  Serious: Yes (Hospitalization, Other)
  Sender: FDA-Public Use
  Company Number: US-BAYER-2014-063503

PATIENT
  Age: 56 Year
  Sex: Female

DRUGS (5)
  1. STIVARGA [Suspect]
     Active Substance: REGORAFENIB
     Indication: COLORECTAL CANCER
     Dosage: 120 MG DAILY
     Route: 048
     Dates: start: 20140328
  2. STIVARGA [Suspect]
     Active Substance: REGORAFENIB
     Indication: COLORECTAL CANCER
     Dosage: 80 MG, QD
     Route: 048
  3. STIVARGA [Suspect]
     Active Substance: REGORAFENIB
     Indication: GASTROINTESTINAL STROMAL TUMOUR
     Dosage: 4 TABLETS/DAY
     Route: 048
  4. STIVARGA [Suspect]
     Active Substance: REGORAFENIB
     Indication: COLORECTAL CANCER
     Dosage: UNK
     Route: 048
  5. STIVARGA [Suspect]
     Active Substance: REGORAFENIB
     Indication: COLORECTAL CANCER
     Dosage: 120 MG, QD
     Route: 048
     Dates: start: 20140328

REACTIONS (18)
  - Gait disturbance [None]
  - Fatigue [None]
  - Skin ulcer [Recovering/Resolving]
  - Palmar-plantar erythrodysaesthesia syndrome [None]
  - Scar [Recovering/Resolving]
  - Blister [None]
  - Dysphagia [Not Recovered/Not Resolved]
  - Pain [None]
  - Peripheral swelling [None]
  - Contusion [Recovering/Resolving]
  - Nausea [None]
  - Limb injury [None]
  - Blister [None]
  - Laceration [None]
  - Discomfort [None]
  - Abdominal pain [None]
  - Skin exfoliation [Recovering/Resolving]
  - Skin exfoliation [Recovering/Resolving]

NARRATIVE: CASE EVENT DATE: 20140415
